FAERS Safety Report 24779025 (Version 2)
Quarter: 2025Q1

REPORT INFORMATION
  Report Type: Report from Study
  Country: US (occurrence: US)
  Receive Date: 20241226
  Receipt Date: 20250101
  Transmission Date: 20250409
  Serious: Yes (Other)
  Sender: ABBVIE
  Company Number: US-ABBVIE-6061114

PATIENT
  Sex: Female

DRUGS (1)
  1. SKYRIZI [Suspect]
     Active Substance: RISANKIZUMAB-RZAA
     Indication: Crohn^s disease
     Route: 058
     Dates: start: 20230701

REACTIONS (5)
  - Rotator cuff syndrome [Unknown]
  - Asthenia [Not Recovered/Not Resolved]
  - Nerve injury [Unknown]
  - Peripheral coldness [Not Recovered/Not Resolved]
  - Impaired healing [Unknown]
